FAERS Safety Report 13682839 (Version 1)
Quarter: 2017Q2

REPORT INFORMATION
  Report Type: Spontaneous
  Country: US (occurrence: US)
  Receive Date: 20170623
  Receipt Date: 20170623
  Transmission Date: 20170830
  Serious: Yes (Other)
  Sender: FDA-Public Use
  Company Number: US-PFIZER INC-2017269508

PATIENT
  Sex: Male

DRUGS (1)
  1. XELJANZ XR [Suspect]
     Active Substance: TOFACITINIB CITRATE
     Dosage: 11 MG, UNK

REACTIONS (11)
  - Rash [Recovered/Resolved]
  - Blood pressure increased [Unknown]
  - Joint crepitation [Unknown]
  - Paraesthesia [Unknown]
  - Synovitis [Unknown]
  - Arthralgia [Unknown]
  - Hypoaesthesia [Unknown]
  - Depression [Unknown]
  - Synovial cyst [Unknown]
  - Tenderness [Unknown]
  - Dupuytren^s contracture [Unknown]
